FAERS Safety Report 11824037 (Version 2)
Quarter: 2015Q4

REPORT INFORMATION
  Report Type: Spontaneous
  Country: US (occurrence: US)
  Receive Date: 20151210
  Receipt Date: 20151215
  Transmission Date: 20160305
  Serious: No
  Sender: FDA-Public Use
  Company Number: PHEH2015US025057

PATIENT
  Sex: Male

DRUGS (2)
  1. LAMICTAL [Concomitant]
     Active Substance: LAMOTRIGINE
     Indication: PRODUCT USED FOR UNKNOWN INDICATION
     Route: 065
  2. TRILEPTAL [Suspect]
     Active Substance: OXCARBAZEPINE
     Indication: SEIZURE
     Route: 065

REACTIONS (1)
  - Drug ineffective [Unknown]
